FAERS Safety Report 5732010-6 (Version None)
Quarter: 2008Q2

REPORT INFORMATION
  Report Type: 
  Country: None (occurrence: None)
  Receive Date: 20080508
  Receipt Date: 20080506
  Transmission Date: 20081010
  Serious: Yes (Hospitalization)
  Sender: FDA-Public Use
  Company Number: US-RB-009277-08

PATIENT
  Sex: Male
  Weight: 144 kg

DRUGS (6)
  1. SUBOXONE [Suspect]
     Route: 060
     Dates: start: 20080129, end: 20080212
  2. SUBOXONE [Suspect]
     Route: 060
     Dates: start: 20080213
  3. LEXAPRO [Concomitant]
     Indication: DEPRESSION
     Route: 048
  4. GROWTH HORMONE [Suspect]
     Indication: MUSCLE BUILDING THERAPY
     Dosage: DOSAGE UNKNOWN
     Route: 048
  5. TESTOSTERONE [Suspect]
     Indication: MUSCLE BUILDING THERAPY
     Dosage: DOSAGE UNKNOWN
     Route: 030
  6. ANABOLIC STEROID [Suspect]
     Indication: MUSCLE BUILDING THERAPY
     Dosage: DOSAGE UNKNOWN
     Route: 030

REACTIONS (7)
  - CARDIOMYOPATHY [None]
  - FLAT AFFECT [None]
  - HYPERHIDROSIS [None]
  - HYPERTENSION [None]
  - INSOMNIA [None]
  - LOSS OF CONSCIOUSNESS [None]
  - PANIC ATTACK [None]
